FAERS Safety Report 23088047 (Version 6)
Quarter: 2024Q2

REPORT INFORMATION
  Report Type: Spontaneous
  Country: US (occurrence: US)
  Receive Date: 20231020
  Receipt Date: 20240624
  Transmission Date: 20240716
  Serious: No
  Sender: FDA-Public Use
  Company Number: US-BRISTOL-MYERS SQUIBB COMPANY-2023-149652

PATIENT
  Age: 86 Year
  Sex: Female

DRUGS (3)
  1. SPRYCEL [Suspect]
     Active Substance: DASATINIB
     Indication: Chronic myeloid leukaemia
     Route: 048
     Dates: start: 202309
  2. SPRYCEL [Suspect]
     Active Substance: DASATINIB
     Route: 048
     Dates: start: 202309
  3. SPRYCEL [Suspect]
     Active Substance: DASATINIB

REACTIONS (4)
  - Dizziness [Not Recovered/Not Resolved]
  - Change of bowel habit [Unknown]
  - Periorbital swelling [Unknown]
  - Dyspnoea [Unknown]
